FAERS Safety Report 9741030 (Version 1)
Quarter: 2013Q4

REPORT INFORMATION
  Report Type: Spontaneous
  Country: US (occurrence: US)
  Receive Date: 20131209
  Receipt Date: 20131209
  Transmission Date: 20140711
  Serious: Yes (Other)
  Sender: FDA-Public Use
  Company Number: US-PFIZER INC-2013351158

PATIENT
  Age: 51 Year
  Sex: Female
  Weight: 81.63 kg

DRUGS (4)
  1. NORVASC [Suspect]
     Indication: HYPERTENSION
     Dosage: 5 MG, 1X/DAY
     Route: 048
  2. NORVASC [Suspect]
     Dosage: 5 MG, 1X/DAY
     Route: 048
  3. DIAZEPAM [Concomitant]
     Indication: IRRITABLE BOWEL SYNDROME
     Dosage: 5 MG, UNK
  4. PREMARIN VAGINAL CREAM [Concomitant]
     Indication: VULVOVAGINAL DRYNESS
     Dosage: 1.250 MG AS NEEDED, TWO TO THREE TIMES A WEEK
     Route: 067

REACTIONS (3)
  - Abdominal discomfort [Not Recovered/Not Resolved]
  - Barrett^s oesophagus [Not Recovered/Not Resolved]
  - Arthralgia [Unknown]
